FAERS Safety Report 8084976-X (Version None)
Quarter: 2012Q1

REPORT INFORMATION
  Report Type: 
  Country: None (occurrence: None)
  Receive Date: 20120128
  Receipt Date: 20110330
  Transmission Date: 20120608
  Serious: No
  Sender: FDA-Public Use
  Company Number: US-ABBOTT-11P-163-0715755-00

PATIENT
  Sex: Female
  Weight: 61.29 kg

DRUGS (4)
  1. VITAMIN TAB [Concomitant]
     Indication: VITAMIN SUPPLEMENTATION
  2. HUMIRA [Suspect]
     Indication: CROHN'S DISEASE
     Dates: start: 20070601
  3. HUMIRA [Suspect]
     Dates: start: 20070901
  4. ACETAMINOPHEN [Concomitant]
     Indication: PAIN

REACTIONS (3)
  - INCORRECT DOSE ADMINISTERED [None]
  - NAUSEA [None]
  - FEELING ABNORMAL [None]
